FAERS Safety Report 23774574 (Version 6)
Quarter: 2025Q4

REPORT INFORMATION
  Report Type: Report from Study
  Country: None (occurrence: JP)
  Receive Date: 20240423
  Receipt Date: 20251016
  Transmission Date: 20260117
  Serious: Yes (Life-Threatening, Hospitalization, Other)
  Sender: ALNYLAM PHARMACEUTICALS
  Company Number: JP-ALNYLAM PHARMACEUTICALS, INC.-ALN-2023-004734

PATIENT
  Age: 66 Year
  Weight: 43.5 kg

DRUGS (12)
  1. AMVUTTRA [Suspect]
     Active Substance: VUTRISIRAN
     Indication: Hereditary neuropathic amyloidosis
     Dosage: 25 MILLIGRAM, Q3M
  2. AMVUTTRA [Suspect]
     Active Substance: VUTRISIRAN
     Dosage: 25 MILLIGRAM, Q3M
  3. AMVUTTRA [Suspect]
     Active Substance: VUTRISIRAN
     Dosage: 25 MILLIGRAM, Q3M
  4. Chocola a [Concomitant]
     Indication: Vitamin supplementation
     Dosage: 10000 INTERNATIONAL UNIT
  5. RABEPRAZOLE SODIUM [Concomitant]
     Active Substance: RABEPRAZOLE SODIUM
     Indication: Hereditary neuropathic amyloidosis
     Dosage: 10 MILLIGRAM
  6. DOMPERIDONE [Concomitant]
     Active Substance: DOMPERIDONE
     Indication: Hereditary neuropathic amyloidosis
     Dosage: 30 MILLIGRAM
  7. MOSAPRIDE CITRATE [Concomitant]
     Active Substance: MOSAPRIDE CITRATE
     Indication: Hereditary neuropathic amyloidosis
     Dosage: 10 MILLIGRAM
  8. MIYA-BM [Concomitant]
     Active Substance: CLOSTRIDIUM BUTYRICUM SPORES STRAIN M-55
     Indication: Hereditary neuropathic amyloidosis
     Dosage: 6 DOSAGE FORM
  9. RAMELTEON [Concomitant]
     Active Substance: RAMELTEON
     Indication: Insomnia
     Dosage: 8 MILLIGRAM
  10. SULPIRIDE [Concomitant]
     Active Substance: SULPIRIDE
     Indication: Hereditary neuropathic amyloidosis
     Dosage: 150 MILLIGRAM
  11. ITOPRIDE [Concomitant]
     Active Substance: ITOPRIDE
     Indication: Hereditary neuropathic amyloidosis
     Dosage: 150 MILLIGRAM
  12. PERPHENAZINE [Concomitant]
     Active Substance: PERPHENAZINE
     Indication: Prophylaxis of nausea and vomiting
     Dosage: 2 MILLIGRAM

REACTIONS (6)
  - Atrioventricular block complete [Not Recovered/Not Resolved]
  - Dysphagia [Not Recovered/Not Resolved]
  - Vomiting [Recovered/Resolved]
  - Urinary tract infection [Recovered/Resolved]
  - Pneumonia aspiration [Recovered/Resolved]
  - Sleep apnoea syndrome [Not Recovered/Not Resolved]
